FAERS Safety Report 4645032-3 (Version None)
Quarter: 2005Q2

REPORT INFORMATION
  Report Type: 
  Country: None (occurrence: None)
  Receive Date: 20050426
  Receipt Date: 20050321
  Transmission Date: 20051028
  Serious: Yes (Disabling)
  Sender: FDA-Public Use
  Company Number: FR-ROCHE-399344

PATIENT
  Age: 41 Year
  Sex: Male
  Weight: 58 kg

DRUGS (5)
  1. PEGASYS [Suspect]
     Indication: HEPATITIS C
     Dosage: FORMULATION REPORTED AS INJECTABLE SOLUTION.
     Route: 058
     Dates: start: 20040702
  2. PEGASYS [Suspect]
     Route: 058
  3. COPEGUS [Concomitant]
     Indication: HEPATITIS C
     Route: 048
     Dates: start: 20040702
  4. DEROXAT [Concomitant]
     Route: 048
     Dates: start: 20041005
  5. DOLIPRANE [Concomitant]
     Route: 048
     Dates: start: 20040702

REACTIONS (1)
  - TREMOR [None]
